FAERS Safety Report 6469030-2 (Version None)
Quarter: 2009Q4

REPORT INFORMATION
  Report Type: 
  Country: None (occurrence: None)
  Receive Date: 20091203
  Receipt Date: 20091124
  Transmission Date: 20100525
  Serious: Yes (Hospitalization)
  Sender: FDA-Public Use
  Company Number: PHHY2009AU51524

PATIENT
  Sex: Male

DRUGS (1)
  1. CLOZAPINE [Suspect]
     Dosage: 700 MG
     Route: 065
     Dates: start: 20061003

REACTIONS (2)
  - AGGRESSION [None]
  - PSYCHOTIC DISORDER [None]
